FAERS Safety Report 6128433-6 (Version None)
Quarter: 2009Q1

REPORT INFORMATION
  Report Type: 
  Country: None (occurrence: None)
  Receive Date: 20090323
  Receipt Date: 20090312
  Transmission Date: 20090719
  Serious: Yes (Death)
  Sender: FDA-Public Use
  Company Number: JP-BRISTOL-MYERS SQUIBB COMPANY-14553069

PATIENT
  Age: 56 Year
  Sex: Male

DRUGS (4)
  1. ABILIFY [Suspect]
     Route: 048
  2. DEPAKENE [Suspect]
     Route: 048
  3. SILECE [Suspect]
     Route: 065
  4. RISPERDAL [Suspect]
     Dosage: LIQUID FORM
     Route: 048

REACTIONS (1)
  - DEATH [None]
